FAERS Safety Report 6305586-8 (Version None)
Quarter: 2009Q3

REPORT INFORMATION
  Report Type: 
  Country: None (occurrence: None)
  Receive Date: 20090806
  Receipt Date: 20090723
  Transmission Date: 20100115
  Serious: Yes (Hospitalization)
  Sender: FDA-Public Use
  Company Number: 8049610

PATIENT
  Age: 22 Year
  Sex: Female

DRUGS (6)
  1. KEPPRA [Suspect]
     Dosage: 1000 MG 3/D PO
     Route: 048
  2. GARDENAL /00023201/ [Suspect]
     Dosage: 50 M G 2/D PO
     Route: 048
  3. GARDENAL /00023201/ [Suspect]
     Dosage: 75 MG /D PO
     Route: 048
  4. DI-HYDAN [Suspect]
     Dosage: 50 MG 2/D PO
     Route: 048
  5. DI-HYDAN [Suspect]
     Dosage: 150 MG /D PO
     Route: 048
  6. RIVOTRIL [Suspect]
     Dosage: 13 GTT 3/D PO
     Route: 048

REACTIONS (3)
  - DISTURBANCE IN ATTENTION [None]
  - DYSPHAGIA [None]
  - SOMNOLENCE [None]
